FAERS Safety Report 7022011-2 (Version None)
Quarter: 2010Q3

REPORT INFORMATION
  Report Type: 
  Country: None (occurrence: None)
  Receive Date: 20100930
  Receipt Date: 20100830
  Transmission Date: 20110219
  Serious: No
  Sender: FDA-Public Use
  Company Number: US-BAYER-201026944NA

PATIENT
  Sex: Female

DRUGS (1)
  1. CLIMARA [Suspect]
     Indication: PRODUCT USED FOR UNKNOWN INDICATION
     Dosage: EXCESS GLUE COMING FROM THE EDGES OF THE PATCH: STICKS TO THE UNDERWEAR AND LEAVE A RING TO THE SKIN
     Route: 062

REACTIONS (1)
  - NO ADVERSE EVENT [None]
